FAERS Safety Report 7960467 (Version 8)
Quarter: 2013Q2

REPORT INFORMATION
  Report Type: Spontaneous
  Country: US (occurrence: US)
  Receive Date: 20110525
  Receipt Date: 20130606
  Transmission Date: 20140414
  Serious: No
  Sender: FDA-Public Use
  Company Number: US-ASTRAZENECA-2011SE29884

PATIENT
  Age: 73 Year
  Sex: Female

DRUGS (1)
  1. CRESTOR [Suspect]
     Route: 048

REACTIONS (10)
  - Nocturnal dyspnoea [Unknown]
  - Mobility decreased [Unknown]
  - Choking [Unknown]
  - Dyspnoea [Unknown]
  - Fall [Unknown]
  - Diplopia [Unknown]
  - Blood cholesterol abnormal [Unknown]
  - Cardiac disorder [Unknown]
  - Dizziness [Unknown]
  - Drug dose omission [Unknown]
